FAERS Safety Report 4725821-7 (Version None)
Quarter: 2005Q3

REPORT INFORMATION
  Report Type: 
  Country: None (occurrence: None)
  Receive Date: 20050727
  Receipt Date: 20050719
  Transmission Date: 20060218
  Serious: Yes (Hospitalization)
  Sender: FDA-Public Use
  Company Number: 2005PK01308

PATIENT
  Age: 77 Year
  Sex: Female
  Weight: 69 kg

DRUGS (6)
  1. NOLVADEX [Suspect]
     Indication: BREAST CANCER
     Route: 048
     Dates: start: 20010328
  2. LASIX [Concomitant]
     Indication: VARICOSE VEIN
     Route: 048
  3. LASIX [Concomitant]
     Indication: HYPERTONIA
     Route: 048
  4. DAFLON [Concomitant]
     Indication: VARICOSE VEIN
     Route: 048
  5. NEURONTIN [Concomitant]
     Route: 048
  6. BLOPRESS [Concomitant]
     Indication: HYPERTONIA
     Route: 048

REACTIONS (1)
  - STASIS DERMATITIS [None]
